FAERS Safety Report 8077500-9 (Version None)
Quarter: 2012Q1

REPORT INFORMATION
  Report Type: 
  Country: None (occurrence: None)
  Receive Date: 20120126
  Receipt Date: 20120126
  Transmission Date: 20120608
  Serious: Yes (Life-Threatening, Hospitalization)
  Sender: FDA-Public Use
  Company Number: None

PATIENT
  Age: 54 Year
  Sex: Female
  Weight: 80.7403 kg

DRUGS (16)
  1. CHEMOTHERAPY [Concomitant]
  2. FLUOXETINE [Concomitant]
  3. MONTELUKAST [Concomitant]
  4. SENNA [Concomitant]
  5. VORINOSTAT (SAHA) - 400MG/ MERCK + CO., INC. [Suspect]
     Indication: METASTASES TO CENTRAL NERVOUS SYSTEM
     Dosage: 400MG/WITH RT-5X WK/ORAL
     Route: 048
     Dates: start: 20111214, end: 20120105
  6. LYRICA [Concomitant]
  7. COLACE [Concomitant]
  8. LEVITIRACETAM [Concomitant]
  9. NEXIUM [Concomitant]
  10. LORATADINE [Concomitant]
  11. EXTERNAL RADIATION THERAPY [Concomitant]
  12. RADIATION THERAPY [Concomitant]
  13. ROPINIROLE [Concomitant]
  14. CYCLOBENZAPRINE [Concomitant]
  15. ALBUTEROL [Concomitant]
  16. DECADRON [Concomitant]

REACTIONS (2)
  - PULMONARY EMBOLISM [None]
  - DYSPNOEA EXERTIONAL [None]
